FAERS Safety Report 17651265 (Version 2)
Quarter: 2020Q2

REPORT INFORMATION
  Report Type: Other
  Country: US (occurrence: US)
  Receive Date: 20200409
  Receipt Date: 20200415
  Transmission Date: 20200713
  Serious: Yes (Hospitalization, Other)
  Sender: FDA-Public Use
  Company Number: US-SHIRE-US202012748

PATIENT
  Sex: Female

DRUGS (8)
  1. MAGNESIUM [Suspect]
     Active Substance: MAGNESIUM
     Indication: POST PROCEDURAL HYPOPARATHYROIDISM
  2. CALCITRIOL. [Suspect]
     Active Substance: CALCITRIOL
     Indication: POST PROCEDURAL HYPOTHYROIDISM
     Dosage: 1 MICROGRAM, 3X/DAY:TID
     Route: 065
  3. NATPARA (PARATHYROID HORMONE) [Suspect]
     Active Substance: PARATHYROID HORMONE
     Indication: POST PROCEDURAL HYPOTHYROIDISM
     Route: 065
  4. MAGNESIUM [Suspect]
     Active Substance: MAGNESIUM
     Indication: POST PROCEDURAL HYPOTHYROIDISM
     Dosage: UNK, 2X/DAY:BID
     Route: 065
  5. CALCIUM CITRATE [Suspect]
     Active Substance: CALCIUM CITRATE
     Indication: POST PROCEDURAL HYPOPARATHYROIDISM
  6. CALCITRIOL. [Suspect]
     Active Substance: CALCITRIOL
     Indication: POST PROCEDURAL HYPOPARATHYROIDISM
  7. CALCIUM CITRATE [Suspect]
     Active Substance: CALCIUM CITRATE
     Indication: POST PROCEDURAL HYPOTHYROIDISM
     Dosage: 1000 MILLIGRAM, 3X/DAY:TID
     Route: 065
  8. NATPARA (PARATHYROID HORMONE) [Suspect]
     Active Substance: PARATHYROID HORMONE
     Indication: POST PROCEDURAL HYPOPARATHYROIDISM

REACTIONS (2)
  - Recalled product [Unknown]
  - Hypocalcaemia [Unknown]
